FAERS Safety Report 18190355 (Version 1)
Quarter: 2020Q3

REPORT INFORMATION
  Report Type: Spontaneous
  Country: US (occurrence: US)
  Receive Date: 20200824
  Receipt Date: 20200824
  Transmission Date: 20201103
  Serious: Yes (Hospitalization, Other)
  Sender: FDA-Public Use
  Company Number: US-ELI_LILLY_AND_COMPANY-US202008004758

PATIENT
  Sex: Male

DRUGS (4)
  1. PROZAC [Suspect]
     Active Substance: FLUOXETINE HYDROCHLORIDE
     Indication: DEPRESSION
     Dosage: 20 MG, UNKNOWN
     Route: 065
  2. PHENYTOIN SODIUM. [Suspect]
     Active Substance: PHENYTOIN SODIUM
     Indication: SEIZURE
     Dosage: UNK, UNKNOWN
     Route: 065
     Dates: start: 2005
  3. FLOMAX [Concomitant]
     Active Substance: TAMSULOSIN HYDROCHLORIDE
     Indication: PROSTATIC DISORDER
     Dosage: UNK, UNKNOWN
     Route: 065
  4. BOTOX [Concomitant]
     Active Substance: ONABOTULINUMTOXINA
     Indication: MIGRAINE
     Dosage: UNK, UNKNOWN
     Route: 065

REACTIONS (8)
  - Aphasia [Unknown]
  - Seizure [Unknown]
  - Seizure [Unknown]
  - Neuropathy peripheral [Unknown]
  - Depression [Unknown]
  - Product dose omission issue [Unknown]
  - Haemorrhagic stroke [Unknown]
  - Ruptured cerebral aneurysm [Unknown]

NARRATIVE: CASE EVENT DATE: 1999
